FAERS Safety Report 9836812 (Version 1)
Quarter: 2014Q1

REPORT INFORMATION
  Report Type: Spontaneous
  Country: US (occurrence: US)
  Receive Date: 20140123
  Receipt Date: 20140123
  Transmission Date: 20141002
  Serious: No
  Sender: FDA-Public Use
  Company Number: US-PFIZER INC-2014015417

PATIENT
  Sex: Male

DRUGS (1)
  1. GLIPIZIDE [Suspect]
     Indication: HYPERGLYCAEMIA
     Dosage: 10 MG, UNK

REACTIONS (1)
  - Blood glucose increased [Unknown]
